FAERS Safety Report 9474066 (Version 2)
Quarter: 2013Q4

REPORT INFORMATION
  Report Type: Spontaneous
  Country: US (occurrence: None)
  Receive Date: 20130820
  Receipt Date: 20131009
  Transmission Date: 20140711
  Serious: Yes (Other)
  Sender: FDA-Public Use
  Company Number: 2013US002266

PATIENT
  Age: 62 Year
  Sex: Female
  Weight: 75 kg

DRUGS (7)
  1. ICLUSIG [Suspect]
     Indication: CHRONIC MYELOID LEUKAEMIA
     Route: 048
     Dates: start: 20130703
  2. MULTIVITAMIN (VITAMINS NOS) [Concomitant]
  3. RANITIDINE (RANITIDINE) [Concomitant]
  4. METOPROLOL (METOPROLOL) [Concomitant]
  5. ASA (ASA) [Concomitant]
  6. OXYCODONE (OXYCODONE) [Concomitant]
  7. POTASSIUM CHLORIDE (POTASSIUM CHLORIDE) [Concomitant]

REACTIONS (5)
  - Chest pain [None]
  - Pleural effusion [None]
  - Myalgia [None]
  - Rash [None]
  - Constipation [None]
